FAERS Safety Report 6491614-6 (Version None)
Quarter: 2009Q4

REPORT INFORMATION
  Report Type: 
  Country: None (occurrence: None)
  Receive Date: 20091127
  Receipt Date: 20091109
  Transmission Date: 20100525
  Serious: Yes (Other)
  Sender: FDA-Public Use
  Company Number: 20091109CINRY1250

PATIENT
  Sex: Male

DRUGS (1)
  1. CINRYZE [Suspect]
     Indication: ANGIOEDEMA
     Dosage: THURS (1000 UNIT, TUES, THURS AND SAT) , INTRAVENOUS
     Route: 042
     Dates: start: 20090728

REACTIONS (11)
  - BACK PAIN [None]
  - FATIGUE [None]
  - GASTROENTERITIS VIRAL [None]
  - HEADACHE [None]
  - LIP SWELLING [None]
  - OEDEMA PERIPHERAL [None]
  - PAIN [None]
  - PHARYNGEAL OEDEMA [None]
  - SINUS DISORDER [None]
  - SWOLLEN TONGUE [None]
  - URTICARIA [None]
